FAERS Safety Report 4432585-3 (Version None)
Quarter: 2004Q3

REPORT INFORMATION
  Report Type: 
  Country: None (occurrence: None)
  Receive Date: 20040823
  Receipt Date: 20040809
  Transmission Date: 20050211
  Serious: Yes (Other)
  Sender: FDA-Public Use
  Company Number: 2004055999

PATIENT
  Age: 71 Year
  Sex: Female

DRUGS (5)
  1. ZYRTEC [Suspect]
     Indication: URTICARIA
     Dosage: 10 MG (10 MG, 1 IN 1 D), ORAL
     Route: 048
     Dates: start: 20040319, end: 20040319
  2. ASPIRIN [Concomitant]
  3. CILAZAPRIL (CILAZAPRIL) [Concomitant]
  4. CELECOXIB (CELECOXIB) [Concomitant]
  5. CHONDROITIN SULFATE SODIUM (CHONDROITIN SULFATE SODIUM) [Concomitant]

REACTIONS (4)
  - ANAPHYLACTIC REACTION [None]
  - CONTUSION [None]
  - FALL [None]
  - LOSS OF CONSCIOUSNESS [None]
